FAERS Safety Report 8972151 (Version 2)
Quarter: 2012Q4

REPORT INFORMATION
  Report Type: 
  Country: US (occurrence: US)
  Receive Date: 20121219
  Receipt Date: 20121226
  Transmission Date: 20130627
  Serious: No
  Sender: FDA-Public Use
  Company Number: US-VERTEX PHARMACEUTICALS INC.-2012-025898

PATIENT
  Age: 57 Year
  Sex: Female
  Weight: 104 kg

DRUGS (3)
  1. VX-950 (TELAPREVIR) [Suspect]
     Indication: HEPATITIS C
     Dosage: 750 mg, tid
     Route: 048
     Dates: start: 20121130
  2. PEGASYS [Suspect]
     Indication: HEPATITIS C
     Dosage: 180 ?g, qw
     Route: 058
     Dates: start: 20121130
  3. RIBAPAK [Suspect]
     Indication: HEPATITIS C
     Dosage: 600 mg AM, 400 mg PM, qd
     Route: 048
     Dates: start: 20121130

REACTIONS (5)
  - Constipation [Not Recovered/Not Resolved]
  - Dyspepsia [Not Recovered/Not Resolved]
  - Fatigue [Unknown]
  - Rash [Unknown]
  - Anorectal discomfort [Unknown]
